FAERS Safety Report 18658418 (Version 4)
Quarter: 2021Q3

REPORT INFORMATION
  Report Type: Report from Study
  Country: DE (occurrence: DE)
  Receive Date: 20201223
  Receipt Date: 20210906
  Transmission Date: 20211014
  Serious: Yes (Hospitalization, Other)
  Sender: FDA-Public Use
  Company Number: DE-SHIRE-DE202021752

PATIENT
  Age: 40 Year
  Sex: Male
  Weight: 104 kg

DRUGS (81)
  1. TEDUGLUTIDE [Suspect]
     Active Substance: TEDUGLUTIDE
     Indication: SHORT-BOWEL SYNDROME
     Dosage: 0.32 MILLILITER
     Route: 065
  2. TEDUGLUTIDE [Suspect]
     Active Substance: TEDUGLUTIDE
     Dosage: 0.300 MILLIGRAM/KILOGRAM
     Route: 065
     Dates: start: 20200810, end: 20200819
  3. TEDUGLUTIDE [Suspect]
     Active Substance: TEDUGLUTIDE
     Dosage: 0.300 MILLIGRAM/KILOGRAM
     Route: 065
     Dates: start: 20190111, end: 20190310
  4. TEDUGLUTIDE [Suspect]
     Active Substance: TEDUGLUTIDE
     Dosage: 0.300 MILLIGRAM/KILOGRAM
     Route: 065
     Dates: start: 20190311
  5. TEDUGLUTIDE [Suspect]
     Active Substance: TEDUGLUTIDE
     Dosage: 0.300 MILLIGRAM/KILOGRAM
     Route: 065
     Dates: start: 20190823, end: 20190829
  6. TEDUGLUTIDE [Suspect]
     Active Substance: TEDUGLUTIDE
     Dosage: 0.300 MILLIGRAM/KILOGRAM
     Route: 065
     Dates: start: 20200218
  7. TEDUGLUTIDE [Suspect]
     Active Substance: TEDUGLUTIDE
     Dosage: 0.300 MILLIGRAM/KILOGRAM
     Route: 065
     Dates: start: 20210412
  8. TEDUGLUTIDE [Suspect]
     Active Substance: TEDUGLUTIDE
     Dosage: 0.300 MILLIGRAM/KILOGRAM
     Route: 065
     Dates: start: 20210412
  9. NEUROBION FORTE [Concomitant]
     Active Substance: CYANOCOBALAMIN\PYRIDOXINE HYDROCHLORIDE\THIAMINE DISULFIDE
     Indication: VITAMIN B6 DEFICIENCY
     Dosage: 82.27 MILLIGRAM, QD
     Route: 048
     Dates: start: 20210308
  10. TEDUGLUTIDE [Suspect]
     Active Substance: TEDUGLUTIDE
     Indication: SHORT-BOWEL SYNDROME
     Dosage: 0.32 MILLILITER
     Route: 065
  11. TEDUGLUTIDE [Suspect]
     Active Substance: TEDUGLUTIDE
     Indication: SHORT-BOWEL SYNDROME
     Dosage: 0.32 MILLILITER
     Route: 065
  12. TEDUGLUTIDE [Suspect]
     Active Substance: TEDUGLUTIDE
     Dosage: 0.300 MILLIGRAM/KILOGRAM
     Route: 065
     Dates: start: 20191028, end: 20200214
  13. TEDUGLUTIDE [Suspect]
     Active Substance: TEDUGLUTIDE
     Dosage: 0.300 MILLIGRAM/KILOGRAM
     Route: 065
     Dates: start: 20191028, end: 20200214
  14. TEDUGLUTIDE [Suspect]
     Active Substance: TEDUGLUTIDE
     Dosage: 0.300 MILLIGRAM/KILOGRAM
     Route: 065
     Dates: start: 20200820, end: 202010
  15. TEDUGLUTIDE [Suspect]
     Active Substance: TEDUGLUTIDE
     Dosage: 0.300 MILLIGRAM/KILOGRAM
     Route: 065
     Dates: start: 20190823, end: 20190829
  16. TEDUGLUTIDE [Suspect]
     Active Substance: TEDUGLUTIDE
     Dosage: 0.300 MILLIGRAM/KILOGRAM
     Route: 065
     Dates: start: 20200218
  17. TEDUGLUTIDE [Suspect]
     Active Substance: TEDUGLUTIDE
     Dosage: 0.300 MILLIGRAM/KILOGRAM
     Route: 065
     Dates: start: 20200820, end: 202010
  18. TEDUGLUTIDE [Suspect]
     Active Substance: TEDUGLUTIDE
     Dosage: 0.300 MILLIGRAM/KILOGRAM
     Route: 065
     Dates: start: 202010, end: 20210410
  19. TEDUGLUTIDE [Suspect]
     Active Substance: TEDUGLUTIDE
     Dosage: 0.300 MILLIGRAM/KILOGRAM
     Route: 065
     Dates: start: 202010, end: 20210410
  20. TEDUGLUTIDE [Suspect]
     Active Substance: TEDUGLUTIDE
     Indication: SHORT-BOWEL SYNDROME
     Dosage: 0.32 MILLILITER
     Route: 065
  21. TEDUGLUTIDE [Suspect]
     Active Substance: TEDUGLUTIDE
     Dosage: 0.300 MILLIGRAM/KILOGRAM
     Route: 065
     Dates: start: 20200218
  22. TEDUGLUTIDE [Suspect]
     Active Substance: TEDUGLUTIDE
     Dosage: 0.300 MILLIGRAM/KILOGRAM
     Route: 065
     Dates: start: 20210412
  23. TEDUGLUTIDE [Suspect]
     Active Substance: TEDUGLUTIDE
     Dosage: 0.300 MILLIGRAM/KILOGRAM
     Route: 065
     Dates: start: 20191028, end: 20200214
  24. TEDUGLUTIDE [Suspect]
     Active Substance: TEDUGLUTIDE
     Dosage: 0.300 MILLIGRAM/KILOGRAM
     Route: 065
     Dates: start: 20200810, end: 20200819
  25. TEDUGLUTIDE [Suspect]
     Active Substance: TEDUGLUTIDE
     Dosage: 0.300 MILLIGRAM/KILOGRAM
     Route: 065
     Dates: start: 20191028, end: 20200214
  26. TEDUGLUTIDE [Suspect]
     Active Substance: TEDUGLUTIDE
     Dosage: 0.300 MILLIGRAM/KILOGRAM
     Route: 065
     Dates: start: 20200218
  27. TEDUGLUTIDE [Suspect]
     Active Substance: TEDUGLUTIDE
     Dosage: 0.300 MILLIGRAM/KILOGRAM
     Route: 065
     Dates: start: 20200810, end: 20200819
  28. TEDUGLUTIDE [Suspect]
     Active Substance: TEDUGLUTIDE
     Dosage: 0.300 MILLIGRAM/KILOGRAM
     Route: 065
     Dates: start: 20200820, end: 202010
  29. TEDUGLUTIDE [Suspect]
     Active Substance: TEDUGLUTIDE
     Dosage: 0.300 MILLIGRAM/KILOGRAM
     Route: 065
     Dates: start: 20210412
  30. TEDUGLUTIDE [Suspect]
     Active Substance: TEDUGLUTIDE
     Dosage: 0.300 MILLIGRAM/KILOGRAM
     Route: 065
     Dates: start: 20210412
  31. TEDUGLUTIDE [Suspect]
     Active Substance: TEDUGLUTIDE
     Dosage: 0.300 MILLIGRAM/KILOGRAM
     Route: 065
     Dates: start: 20190111, end: 20190310
  32. TEDUGLUTIDE [Suspect]
     Active Substance: TEDUGLUTIDE
     Dosage: 0.300 MILLIGRAM/KILOGRAM
     Route: 065
     Dates: start: 20190823, end: 20190829
  33. TEDUGLUTIDE [Suspect]
     Active Substance: TEDUGLUTIDE
     Dosage: 0.300 MILLIGRAM/KILOGRAM
     Route: 065
     Dates: start: 20190823, end: 20190829
  34. TEDUGLUTIDE [Suspect]
     Active Substance: TEDUGLUTIDE
     Dosage: 0.300 MILLIGRAM/KILOGRAM
     Route: 065
     Dates: start: 20190830, end: 20191014
  35. TEDUGLUTIDE [Suspect]
     Active Substance: TEDUGLUTIDE
     Dosage: 0.300 MILLIGRAM/KILOGRAM
     Route: 065
     Dates: start: 20191015, end: 20191027
  36. TEDUGLUTIDE [Suspect]
     Active Substance: TEDUGLUTIDE
     Dosage: 0.300 MILLIGRAM/KILOGRAM
     Route: 065
     Dates: start: 20191015, end: 20191027
  37. TEDUGLUTIDE [Suspect]
     Active Substance: TEDUGLUTIDE
     Dosage: 0.300 MILLIGRAM/KILOGRAM
     Route: 065
     Dates: start: 20191028, end: 20200214
  38. TEDUGLUTIDE [Suspect]
     Active Substance: TEDUGLUTIDE
     Dosage: 0.300 MILLIGRAM/KILOGRAM
     Route: 065
     Dates: start: 20200820, end: 202010
  39. TEDUGLUTIDE [Suspect]
     Active Substance: TEDUGLUTIDE
     Dosage: 0.300 MILLIGRAM/KILOGRAM
     Route: 065
     Dates: start: 202010, end: 20210410
  40. TEDUGLUTIDE [Suspect]
     Active Substance: TEDUGLUTIDE
     Dosage: 0.300 MILLIGRAM/KILOGRAM
     Route: 065
     Dates: start: 20210412
  41. TEDUGLUTIDE [Suspect]
     Active Substance: TEDUGLUTIDE
     Dosage: 0.300 MILLIGRAM/KILOGRAM
     Route: 065
     Dates: start: 20200810, end: 20200819
  42. TEDUGLUTIDE [Suspect]
     Active Substance: TEDUGLUTIDE
     Dosage: 0.300 MILLIGRAM/KILOGRAM
     Route: 065
     Dates: start: 20200820, end: 202010
  43. TEDUGLUTIDE [Suspect]
     Active Substance: TEDUGLUTIDE
     Dosage: 0.300 MILLIGRAM/KILOGRAM
     Route: 065
     Dates: start: 20190311
  44. TEDUGLUTIDE [Suspect]
     Active Substance: TEDUGLUTIDE
     Dosage: 0.300 MILLIGRAM/KILOGRAM
     Route: 065
     Dates: start: 20190311
  45. TEDUGLUTIDE [Suspect]
     Active Substance: TEDUGLUTIDE
     Dosage: 0.300 MILLIGRAM/KILOGRAM
     Route: 065
     Dates: start: 20190311
  46. TEDUGLUTIDE [Suspect]
     Active Substance: TEDUGLUTIDE
     Dosage: 0.300 MILLIGRAM/KILOGRAM
     Route: 065
     Dates: start: 20190830, end: 20191014
  47. TEDUGLUTIDE [Suspect]
     Active Substance: TEDUGLUTIDE
     Dosage: 0.300 MILLIGRAM/KILOGRAM
     Route: 065
     Dates: start: 20200810, end: 20200819
  48. TEDUGLUTIDE [Suspect]
     Active Substance: TEDUGLUTIDE
     Dosage: 0.300 MILLIGRAM/KILOGRAM
     Route: 065
     Dates: start: 20191028, end: 20200214
  49. TEDUGLUTIDE [Suspect]
     Active Substance: TEDUGLUTIDE
     Dosage: 0.300 MILLIGRAM/KILOGRAM
     Route: 065
     Dates: start: 20200810, end: 20200819
  50. TEDUGLUTIDE [Suspect]
     Active Substance: TEDUGLUTIDE
     Dosage: 0.300 MILLIGRAM/KILOGRAM
     Route: 065
     Dates: start: 202010, end: 20210410
  51. TEDUGLUTIDE [Suspect]
     Active Substance: TEDUGLUTIDE
     Dosage: 0.300 MILLIGRAM/KILOGRAM
     Route: 065
     Dates: start: 20190830, end: 20191014
  52. TEDUGLUTIDE [Suspect]
     Active Substance: TEDUGLUTIDE
     Dosage: 0.300 MILLIGRAM/KILOGRAM
     Route: 065
     Dates: start: 20191015, end: 20191027
  53. TEDUGLUTIDE [Suspect]
     Active Substance: TEDUGLUTIDE
     Dosage: 0.300 MILLIGRAM/KILOGRAM
     Route: 065
     Dates: start: 20191015, end: 20191027
  54. TEDUGLUTIDE [Suspect]
     Active Substance: TEDUGLUTIDE
     Dosage: 0.300 MILLIGRAM/KILOGRAM
     Route: 065
     Dates: start: 20191028, end: 20200214
  55. TEDUGLUTIDE [Suspect]
     Active Substance: TEDUGLUTIDE
     Dosage: 0.300 MILLIGRAM/KILOGRAM
     Route: 065
     Dates: start: 20200218
  56. CEPHALEXIN. [Concomitant]
     Active Substance: CEPHALEXIN
     Indication: WOUND
     Dosage: 1000.00 MILLIGRAM, QD
     Route: 048
     Dates: start: 20210107, end: 20210115
  57. TEDUGLUTIDE [Suspect]
     Active Substance: TEDUGLUTIDE
     Dosage: 0.300 MILLIGRAM/KILOGRAM
     Route: 065
     Dates: start: 20200218
  58. TEDUGLUTIDE [Suspect]
     Active Substance: TEDUGLUTIDE
     Dosage: 0.300 MILLIGRAM/KILOGRAM
     Route: 065
     Dates: start: 20200820, end: 202010
  59. TEDUGLUTIDE [Suspect]
     Active Substance: TEDUGLUTIDE
     Dosage: 0.300 MILLIGRAM/KILOGRAM
     Route: 065
     Dates: start: 202010, end: 20210410
  60. TEDUGLUTIDE [Suspect]
     Active Substance: TEDUGLUTIDE
     Dosage: 0.300 MILLIGRAM/KILOGRAM
     Route: 065
     Dates: start: 202010, end: 20210410
  61. TEDUGLUTIDE [Suspect]
     Active Substance: TEDUGLUTIDE
     Dosage: 0.300 MILLIGRAM/KILOGRAM
     Route: 065
     Dates: start: 20210412
  62. TEDUGLUTIDE [Suspect]
     Active Substance: TEDUGLUTIDE
     Dosage: 0.300 MILLIGRAM/KILOGRAM
     Route: 065
     Dates: start: 20190111, end: 20190310
  63. TEDUGLUTIDE [Suspect]
     Active Substance: TEDUGLUTIDE
     Dosage: 0.300 MILLIGRAM/KILOGRAM
     Route: 065
     Dates: start: 201904, end: 20190822
  64. TEDUGLUTIDE [Suspect]
     Active Substance: TEDUGLUTIDE
     Dosage: 0.300 MILLIGRAM/KILOGRAM
     Route: 065
     Dates: start: 20191028, end: 20200214
  65. TEDUGLUTIDE [Suspect]
     Active Substance: TEDUGLUTIDE
     Dosage: 0.300 MILLIGRAM/KILOGRAM
     Route: 065
     Dates: start: 20200218
  66. TEDUGLUTIDE [Suspect]
     Active Substance: TEDUGLUTIDE
     Dosage: 0.300 MILLIGRAM/KILOGRAM
     Route: 065
     Dates: start: 20200810, end: 20200819
  67. TEDUGLUTIDE [Suspect]
     Active Substance: TEDUGLUTIDE
     Dosage: 0.300 MILLIGRAM/KILOGRAM
     Route: 065
     Dates: start: 20200820, end: 202010
  68. TEDUGLUTIDE [Suspect]
     Active Substance: TEDUGLUTIDE
     Dosage: 0.300 MILLIGRAM/KILOGRAM
     Route: 065
     Dates: start: 20200820, end: 202010
  69. TEDUGLUTIDE [Suspect]
     Active Substance: TEDUGLUTIDE
     Dosage: 0.300 MILLIGRAM/KILOGRAM
     Route: 065
     Dates: start: 20210412
  70. TAUROLOCK [Concomitant]
     Active Substance: TAUROLIDINE
     Indication: DEVICE RELATED INFECTION
     Route: 050
  71. UNACID [Concomitant]
     Indication: INFECTION
     Dosage: 750 MILLIGRAM, BID
     Route: 048
     Dates: start: 20210205, end: 20210209
  72. TEDUGLUTIDE [Suspect]
     Active Substance: TEDUGLUTIDE
     Dosage: 0.300 MILLIGRAM/KILOGRAM
     Route: 065
     Dates: start: 20200218
  73. TEDUGLUTIDE [Suspect]
     Active Substance: TEDUGLUTIDE
     Dosage: 0.300 MILLIGRAM/KILOGRAM
     Route: 065
     Dates: start: 202010, end: 20210410
  74. TEDUGLUTIDE [Suspect]
     Active Substance: TEDUGLUTIDE
     Dosage: 0.300 MILLIGRAM/KILOGRAM
     Route: 065
     Dates: start: 20190111, end: 20190310
  75. TEDUGLUTIDE [Suspect]
     Active Substance: TEDUGLUTIDE
     Dosage: 0.300 MILLIGRAM/KILOGRAM
     Route: 065
     Dates: start: 201904, end: 20190822
  76. TEDUGLUTIDE [Suspect]
     Active Substance: TEDUGLUTIDE
     Dosage: 0.300 MILLIGRAM/KILOGRAM
     Route: 065
     Dates: start: 201904, end: 20190822
  77. TEDUGLUTIDE [Suspect]
     Active Substance: TEDUGLUTIDE
     Dosage: 0.300 MILLIGRAM/KILOGRAM
     Route: 065
     Dates: start: 201904, end: 20190822
  78. TEDUGLUTIDE [Suspect]
     Active Substance: TEDUGLUTIDE
     Dosage: 0.300 MILLIGRAM/KILOGRAM
     Route: 065
     Dates: start: 20190830, end: 20191014
  79. TEDUGLUTIDE [Suspect]
     Active Substance: TEDUGLUTIDE
     Dosage: 0.300 MILLIGRAM/KILOGRAM
     Route: 065
     Dates: start: 20200810, end: 20200819
  80. TEDUGLUTIDE [Suspect]
     Active Substance: TEDUGLUTIDE
     Dosage: 0.300 MILLIGRAM/KILOGRAM
     Route: 065
     Dates: start: 202010, end: 20210410
  81. TRAMAL [Concomitant]
     Active Substance: TRAMADOL
     Indication: PAIN
     Dosage: 15.00 UNK, TID
     Route: 048
     Dates: start: 20201102

REACTIONS (7)
  - Infection [Recovered/Resolved]
  - Catheter site pain [Recovered/Resolved]
  - Vitamin B6 deficiency [Not Recovered/Not Resolved]
  - Oropharyngeal pain [Recovered/Resolved]
  - Cough [Recovered/Resolved]
  - Device dislocation [Recovered/Resolved]
  - Vascular device infection [Recovered/Resolved]

NARRATIVE: CASE EVENT DATE: 20200615
